FAERS Safety Report 5877003-3 (Version None)
Quarter: 2008Q3

REPORT INFORMATION
  Report Type: 
  Country: None (occurrence: None)
  Receive Date: 20080909
  Receipt Date: 20080909
  Transmission Date: 20090109
  Serious: Yes (Other)
  Sender: FDA-Public Use
  Company Number: None

PATIENT
  Age: 50 Year
  Sex: Female
  Weight: 81.6475 kg

DRUGS (2)
  1. CYMBALTA [Suspect]
     Indication: DEPRESSION
     Dosage: 60MG TWICE A DAY
     Dates: start: 20050310, end: 20080224
  2. CYMBALTA [Suspect]
     Indication: PAIN
     Dosage: 60MG TWICE A DAY
     Dates: start: 20050310, end: 20080224

REACTIONS (5)
  - HEADACHE [None]
  - LOSS OF CONTROL OF LEGS [None]
  - NAUSEA [None]
  - PAIN [None]
  - VISION BLURRED [None]
